FAERS Safety Report 7772636-1 (Version None)
Quarter: 2011Q3

REPORT INFORMATION
  Report Type: 
  Country: None (occurrence: None)
  Receive Date: 20110922
  Receipt Date: 20110117
  Transmission Date: 20111222
  Serious: No
  Sender: FDA-Public Use
  Company Number: US-ASTRAZENECA-2010SE22113

PATIENT
  Age: 452 Month
  Sex: Female
  Weight: 47.6 kg

DRUGS (6)
  1. SEROQUEL XR [Suspect]
     Indication: BIPOLAR I DISORDER
     Route: 048
     Dates: start: 20100215, end: 20100228
  2. PAXIL [Concomitant]
  3. KLONOPIN [Concomitant]
  4. SEROQUEL XR [Suspect]
     Indication: BIPOLAR DISORDER
     Route: 048
     Dates: start: 20100215, end: 20100228
  5. SEROQUEL XR [Suspect]
     Route: 048
  6. SEROQUEL XR [Suspect]
     Route: 048

REACTIONS (7)
  - MENTAL DISORDER [None]
  - DRUG WITHDRAWAL SYNDROME [None]
  - DRUG DOSE OMISSION [None]
  - INSOMNIA [None]
  - ANXIETY [None]
  - FEELING ABNORMAL [None]
  - IMPAIRED WORK ABILITY [None]
